FAERS Safety Report 4910768-3 (Version None)
Quarter: 2006Q1

REPORT INFORMATION
  Report Type: 
  Country: None (occurrence: None)
  Receive Date: 20060214
  Receipt Date: 20060203
  Transmission Date: 20060701
  Serious: Yes (Other)
  Sender: FDA-Public Use
  Company Number: US-JNJFOC-20060201451

PATIENT
  Age: 63 Year
  Sex: Female
  Weight: 136.08 kg

DRUGS (7)
  1. DURAGESIC-100 [Suspect]
     Route: 062
  2. DURAGESIC-100 [Suspect]
     Route: 062
  3. DURAGESIC-100 [Suspect]
     Route: 062
  4. TYLENOL (CAPLET) [Concomitant]
     Indication: PAIN
  5. PROTONICS [Concomitant]
     Indication: GASTRIC DISORDER
  6. INSULIN [Concomitant]
  7. ASPIRIN [Concomitant]
     Indication: CEREBROVASCULAR ACCIDENT PROPHYLAXIS

REACTIONS (5)
  - CEREBROVASCULAR ACCIDENT [None]
  - HALLUCINATION [None]
  - HALLUCINATION, VISUAL [None]
  - IRRITABILITY [None]
  - TREMOR [None]
